FAERS Safety Report 6896172-X (Version None)
Quarter: 2010Q3

REPORT INFORMATION
  Report Type: 
  Country: None (occurrence: None)
  Receive Date: 20100802
  Receipt Date: 20100720
  Transmission Date: 20110219
  Serious: Yes (Hospitalization)
  Sender: FDA-Public Use
  Company Number: A0867264A

PATIENT
  Age: 57 Year
  Sex: Male

DRUGS (10)
  1. AVANDIA [Suspect]
     Dosage: 2MG TWICE PER DAY
     Dates: start: 19990101, end: 20080101
  2. WARFARIN SODIUM [Concomitant]
  3. GLIPIZIDE [Concomitant]
  4. DIPHENHYDRAMINE HCL [Concomitant]
  5. RABEPRAZOLE SODIUM [Concomitant]
  6. CELECOXIB [Concomitant]
  7. LATANOPROST [Concomitant]
  8. LEVOBUNOLOL HCL [Concomitant]
  9. METOPROLOL TARTRATE [Concomitant]
  10. LOSARTAN POTASSIUM [Concomitant]

REACTIONS (1)
  - CARDIAC DISORDER [None]
